FAERS Safety Report 5417052-2 (Version None)
Quarter: 2007Q3

REPORT INFORMATION
  Report Type: 
  Country: None (occurrence: None)
  Receive Date: 20070816
  Receipt Date: 20060927
  Transmission Date: 20080115
  Serious: Yes (Other)
  Sender: FDA-Public Use
  Company Number: PR-BRISTOL-MYERS SQUIBB COMPANY-13523394

PATIENT
  Sex: Male

DRUGS (1)
  1. ZERIT [Suspect]
     Indication: HIV INFECTION

REACTIONS (1)
  - ATROPHY [None]
